FAERS Safety Report 7544153-5 (Version None)
Quarter: 2011Q2

REPORT INFORMATION
  Report Type: 
  Country: None (occurrence: None)
  Receive Date: 20110613
  Receipt Date: 20060327
  Transmission Date: 20111010
  Serious: Yes (Other)
  Sender: FDA-Public Use
  Company Number: PHFR2006GB01093

PATIENT
  Sex: Male

DRUGS (3)
  1. CLOZAPINE [Suspect]
     Indication: SCHIZOPHRENIA
     Dosage: UNK, UNK
     Route: 048
     Dates: start: 20050322
  2. CLOZAPINE [Suspect]
     Dosage: 750 MG, QD
     Route: 048
     Dates: start: 20060207
  3. CITALOPRAM HYDROBROMIDE [Concomitant]
     Indication: DEPRESSION
     Dosage: 20 MG, QD
     Route: 048
     Dates: start: 20060207

REACTIONS (4)
  - VARICELLA [None]
  - TACHYCARDIA [None]
  - RASH VESICULAR [None]
  - PYREXIA [None]
